FAERS Safety Report 9842708 (Version 1)
Quarter: 2014Q1

REPORT INFORMATION
  Report Type: Spontaneous
  Country: FR (occurrence: FR)
  Receive Date: 20140124
  Receipt Date: 20140124
  Transmission Date: 20141002
  Serious: Yes (Hospitalization)
  Sender: FDA-Public Use
  Company Number: FR-PFIZER INC-2014021744

PATIENT
  Age: 77 Year
  Sex: Female

DRUGS (2)
  1. CORDARONE [Suspect]
     Dosage: 400 MG, DAILY
     Route: 048
     Dates: start: 20130613, end: 20130617
  2. CORDARONE [Suspect]
     Indication: ATRIAL FIBRILLATION
     Dosage: 1 DF, SINGLE
     Route: 042
     Dates: start: 20130610, end: 20130610

REACTIONS (2)
  - Hepatocellular injury [Recovered/Resolved]
  - Cholestasis [Recovered/Resolved]
